FAERS Safety Report 11655017 (Version 3)
Quarter: 2016Q1

REPORT INFORMATION
  Report Type: Spontaneous
  Country: US (occurrence: US)
  Receive Date: 20151023
  Receipt Date: 20160321
  Transmission Date: 20160525
  Serious: Yes (Hospitalization, Other)
  Sender: FDA-Public Use
  Company Number: US-ACTAVIS-2015-22834

PATIENT
  Age: 56 Year
  Sex: Male

DRUGS (1)
  1. METFORMIN HYDROCHLORIDE (WATSON LABORATORIES) [Suspect]
     Active Substance: METFORMIN HYDROCHLORIDE
     Indication: TYPE 2 DIABETES MELLITUS
     Dosage: 500 MG, BID
     Route: 065

REACTIONS (2)
  - Respiratory failure [Unknown]
  - Metabolic acidosis [Unknown]
